FAERS Safety Report 9965009 (Version 1)
Quarter: 2014Q1

REPORT INFORMATION
  Report Type: Report from Study
  Country: US (occurrence: US)
  Receive Date: 20140305
  Receipt Date: 20140305
  Transmission Date: 20141002
  Serious: No
  Sender: FDA-Public Use
  Company Number: US-ABBVIE-13P-163-1128759-00

PATIENT
  Age: 46 Year
  Sex: Female

DRUGS (7)
  1. HUMIRA [Suspect]
     Indication: RHEUMATOID ARTHRITIS
     Dates: start: 20130703
  2. VIZELLE DOT [Concomitant]
     Indication: OESTROGEN REPLACEMENT THERAPY
     Dosage: PATCH, CHANGE EVERY 3 DAYS
  3. NOVOLOG 70/30 INSULIN [Concomitant]
     Indication: DIABETES MELLITUS
     Dosage: TWICE DAILY ON A SLIDING SCALE
  4. VICTOSA [Concomitant]
     Indication: DIABETES MELLITUS
  5. METFORMIN [Concomitant]
     Indication: DIABETES MELLITUS
  6. IMITREX [Concomitant]
     Indication: MIGRAINE
  7. NORCO [Concomitant]
     Indication: PAIN
     Dosage: 10/325

REACTIONS (2)
  - Cyst [Recovering/Resolving]
  - Sinusitis [Recovering/Resolving]
